FAERS Safety Report 25191595 (Version 4)
Quarter: 2025Q3

REPORT INFORMATION
  Report Type: Spontaneous
  Country: JP (occurrence: JP)
  Receive Date: 20250414
  Receipt Date: 20250819
  Transmission Date: 20251020
  Serious: Yes (Other)
  Sender: VERICEL
  Company Number: JP-VERICEL-JP-VCEL-25-000102

PATIENT
  Age: 71 Year
  Sex: Male
  Weight: 70.8 kg

DRUGS (9)
  1. BROMELAINS [Suspect]
     Active Substance: BROMELAINS
     Indication: Burns third degree
     Route: 061
     Dates: start: 20250128, end: 20250128
  2. BROMELAINS [Suspect]
     Active Substance: BROMELAINS
     Indication: Burns second degree
  3. NOREPINEPHRINE BITARTRATE [Concomitant]
     Active Substance: NOREPINEPHRINE BITARTRATE
     Indication: Cardiovascular evaluation
     Route: 065
  4. PRECEDEX [Concomitant]
     Active Substance: DEXMEDETOMIDINE HYDROCHLORIDE
     Indication: Pain management
     Route: 042
  5. PROPOFOL [Concomitant]
     Active Substance: PROPOFOL
     Indication: Sedation
     Route: 042
  6. FENTANYL [Concomitant]
     Active Substance: FENTANYL
     Indication: Pain management
     Route: 042
  7. KETALAR [Concomitant]
     Active Substance: KETAMINE HYDROCHLORIDE
     Indication: Product used for unknown indication
     Route: 042
  8. MIDAZOLAM [Concomitant]
     Active Substance: MIDAZOLAM
     Indication: Sedation
     Route: 042
  9. CHLORHEXIDINE [Concomitant]
     Active Substance: CHLORHEXIDINE
     Indication: Infection prophylaxis
     Route: 065

REACTIONS (2)
  - Hypovolaemic shock [Recovering/Resolving]
  - Anaphylactic reaction [Recovering/Resolving]

NARRATIVE: CASE EVENT DATE: 20250128
